FAERS Safety Report 6454059-0 (Version None)
Quarter: 2009Q4

REPORT INFORMATION
  Report Type: 
  Country: None (occurrence: None)
  Receive Date: 20091124
  Receipt Date: 20091113
  Transmission Date: 20100525
  Serious: Yes (Other)
  Sender: FDA-Public Use
  Company Number: B0601741A

PATIENT
  Sex: Female

DRUGS (4)
  1. RELENZA [Suspect]
     Indication: INFLUENZA
     Dosage: 10MG TWICE PER DAY
     Route: 055
     Dates: start: 20091019, end: 20091021
  2. CALONAL [Concomitant]
     Dates: start: 20091019, end: 20091021
  3. MEDICON [Concomitant]
     Dates: start: 20091019, end: 20091023
  4. ALLEGRA [Concomitant]
     Dates: start: 20091019, end: 20091023

REACTIONS (1)
  - DYSGEUSIA [None]
